FAERS Safety Report 7304966-1 (Version None)
Quarter: 2011Q1

REPORT INFORMATION
  Report Type: 
  Country: None (occurrence: None)
  Receive Date: 20110222
  Receipt Date: 20110125
  Transmission Date: 20110831
  Serious: Yes (Hospitalization)
  Sender: FDA-Public Use
  Company Number: AU-BRISTOL-MYERS SQUIBB COMPANY-15375710

PATIENT
  Age: 45 Year
  Sex: Female

DRUGS (9)
  1. DIAZEPAM [Concomitant]
     Route: 048
     Dates: start: 20101108
  2. RAMIPRIL [Concomitant]
  3. ASPIRIN [Concomitant]
  4. OLANZAPINE [Concomitant]
     Route: 048
     Dates: start: 20101108, end: 20101118
  5. FOLIC ACID [Concomitant]
  6. ARIPIPRAZOLE [Suspect]
     Indication: SCHIZOPHRENIA
     Dosage: RESCUE THERAPY ON 13OCT10,400MG IM INJ ON 18OCT10, FIRST WAS GIVEN ON 21SEP2010(PHASE 2 WEEK 16)
     Route: 030
     Dates: start: 20100616
  7. SIMVASTATIN [Concomitant]
  8. METFORMIN [Concomitant]
  9. CLONAZEPAM [Concomitant]
     Indication: AGITATION
     Dosage: 2MG BD SINCE 09NOV10
     Route: 048
     Dates: start: 20101108

REACTIONS (1)
  - SCHIZOPHRENIA [None]
